FAERS Safety Report 7586806-9 (Version None)
Quarter: 2011Q3

REPORT INFORMATION
  Report Type: 
  Country: None (occurrence: None)
  Receive Date: 20110701
  Receipt Date: 20110617
  Transmission Date: 20111222
  Serious: Yes (Hospitalization)
  Sender: FDA-Public Use
  Company Number: PHHY2011IN54795

PATIENT
  Age: 55 Year
  Sex: Female

DRUGS (2)
  1. VERPAMIL HCL [Suspect]
     Dosage: 30 DF, UNK
  2. METOPROLOL TARTRATE [Suspect]
     Dosage: 35 DF, UNK

REACTIONS (17)
  - BRADYCARDIA [None]
  - MYDRIASIS [None]
  - SUICIDE ATTEMPT [None]
  - INTENTIONAL OVERDOSE [None]
  - PERIPHERAL COLDNESS [None]
  - PULSE ABSENT [None]
  - BLOOD PRESSURE SYSTOLIC DECREASED [None]
  - BLOOD GLUCOSE INCREASED [None]
  - METABOLIC ACIDOSIS [None]
  - BLINDNESS [None]
  - PUPILLARY REFLEX IMPAIRED [None]
  - OPTIC ISCHAEMIC NEUROPATHY [None]
  - HAEMODYNAMIC INSTABILITY [None]
  - LETHARGY [None]
  - DISORIENTATION [None]
  - COMA SCALE ABNORMAL [None]
  - VISUAL ACUITY REDUCED [None]
